FAERS Safety Report 4613668-1 (Version None)
Quarter: 2005Q1

REPORT INFORMATION
  Report Type: 
  Country: None (occurrence: None)
  Receive Date: 20050321
  Receipt Date: 20050216
  Transmission Date: 20050727
  Serious: Yes (Hospitalization, Other)
  Sender: FDA-Public Use
  Company Number: US-AMGEN-KDL117079

PATIENT
  Sex: Female

DRUGS (8)
  1. ENBREL [Suspect]
     Indication: RHEUMATOID ARTHRITIS
     Route: 058
     Dates: start: 20010901
  2. METHOTREXATE [Concomitant]
  3. FOLIC ACID [Concomitant]
  4. PREMARIN [Concomitant]
  5. ZANTAC [Concomitant]
  6. DILANTIN [Concomitant]
  7. FOSAMAX [Concomitant]
  8. DICLOFENAC [Concomitant]

REACTIONS (5)
  - ASTHMA [None]
  - CONDITION AGGRAVATED [None]
  - GLAUCOMA [None]
  - RHEUMATOID ARTHRITIS [None]
  - SUBCUTANEOUS ABSCESS [None]
